FAERS Safety Report 21822966 (Version 1)
Quarter: 2023Q1

REPORT INFORMATION
  Report Type: Spontaneous
  Country: US (occurrence: US)
  Receive Date: 20230105
  Receipt Date: 20230105
  Transmission Date: 20230418
  Serious: No
  Sender: FDA-Public Use
  Company Number: US-AMNEAL PHARMACEUTICALS-2022-AMRX-01844

PATIENT
  Age: 49 Year
  Sex: Female
  Weight: 97.5 kg

DRUGS (13)
  1. ACTIVELLA [Suspect]
     Active Substance: ESTRADIOL\NORETHINDRONE ACETATE
     Indication: Uterine leiomyoma
     Dosage: 300 MILLIGRAM, 1 /DAY
     Route: 048
     Dates: start: 20191125, end: 20221111
  2. ALBUTEROL [Concomitant]
     Active Substance: ALBUTEROL
     Indication: Asthma
     Dosage: 180 MCG 1 AS RQUIRED
     Dates: start: 1993
  3. IBUPROFEN [Concomitant]
     Active Substance: IBUPROFEN
     Indication: Pelvic pain
     Dosage: 600MG 1 AS REQURIED
     Route: 048
     Dates: start: 1999
  4. VITAMINS NOS [Concomitant]
     Active Substance: VITAMINS
     Indication: Supplementation therapy
     Dosage: 1 TABLETS, 1 /DAY
     Route: 048
     Dates: start: 2012
  5. AMLODIPINE [Concomitant]
     Active Substance: AMLODIPINE BESYLATE
     Indication: Hypertension
     Dosage: 10MG, 1 /DAY
     Route: 048
     Dates: start: 2016
  6. LISINOPRIL [Concomitant]
     Active Substance: LISINOPRIL
     Indication: Hypertension
     Dosage: 10 MILLIGRAM, 1 /DAY
     Route: 048
     Dates: start: 2016
  7. OMEPRAZOLE [Concomitant]
     Active Substance: OMEPRAZOLE
     Indication: Gastrooesophageal reflux disease
     Dosage: 20 MILLIGRAM, 1 /WEEK
     Route: 048
     Dates: start: 2018
  8. FERROUS SULFATE [Concomitant]
     Active Substance: FERROUS SULFATE
     Indication: Anaemia
     Dosage: 142 MILLIGRAM, 1 /DAY
     Route: 048
     Dates: start: 20190611
  9. VITAMIN D NOS [Concomitant]
     Active Substance: VITAMIN D NOS
     Indication: Vitamin D deficiency
     Dosage: 200IU 1 /DAY
     Route: 048
     Dates: start: 20190612
  10. GLYBURIDE [Concomitant]
     Active Substance: GLYBURIDE
     Indication: Type 2 diabetes mellitus
     Dosage: 5 MILLIGRAM, 1 /DAY
     Route: 048
     Dates: start: 20211011
  11. METFORMIN [Concomitant]
     Active Substance: METFORMIN HYDROCHLORIDE
     Indication: Diabetes mellitus
     Dosage: 2 500MCG, 1/ DAY
     Route: 048
     Dates: start: 20211011
  12. NORETHINDRONE [Concomitant]
     Active Substance: NORETHINDRONE
     Indication: Uterine leiomyoma
     Dosage: 10 MILLIGRAM, 1 /DAY
     Route: 048
     Dates: start: 20220309
  13. NORETHINDRONE [Concomitant]
     Active Substance: NORETHINDRONE
     Dosage: 1 5MG, 1/DAY
     Route: 048
     Dates: start: 20220402, end: 20220408

REACTIONS (1)
  - Bone density decreased [Not Recovered/Not Resolved]

NARRATIVE: CASE EVENT DATE: 20220316
